FAERS Safety Report 7961088-4 (Version None)
Quarter: 2011Q4

REPORT INFORMATION
  Report Type: 
  Country: None (occurrence: None)
  Receive Date: 20111207
  Receipt Date: 20111128
  Transmission Date: 20120403
  Serious: No
  Sender: FDA-Public Use
  Company Number: US-JNJFOC-20111101095

PATIENT
  Sex: Male
  Weight: 105.96 kg

DRUGS (1)
  1. INVEGA SUSTENNA [Suspect]
     Indication: SCHIZOPHRENIA
     Route: 030
     Dates: start: 20100706

REACTIONS (5)
  - FLUSHING [None]
  - PRURITUS [None]
  - HYPERSENSITIVITY [None]
  - RETCHING [None]
  - VOMITING [None]
